FAERS Safety Report 6503667-7 (Version None)
Quarter: 2009Q4

REPORT INFORMATION
  Report Type: 
  Country: None (occurrence: None)
  Receive Date: 20091217
  Receipt Date: 20091208
  Transmission Date: 20100525
  Serious: Yes (Other)
  Sender: FDA-Public Use
  Company Number: US-JNJFOC-20091202962

PATIENT
  Sex: Male
  Weight: 106.6 kg

DRUGS (2)
  1. REMICADE [Suspect]
     Indication: CROHN'S DISEASE
     Route: 042
  2. MORPHINE [Concomitant]
     Indication: PAIN

REACTIONS (2)
  - INCISIONAL HERNIA [None]
  - NEPHROLITHIASIS [None]
